FAERS Safety Report 6824364-4 (Version None)
Quarter: 2010Q3

REPORT INFORMATION
  Report Type: 
  Country: None (occurrence: None)
  Receive Date: 20100708
  Receipt Date: 20061010
  Transmission Date: 20110219
  Serious: No
  Sender: FDA-Public Use
  Company Number: US-PFIZER INC-2006128833

PATIENT
  Sex: Female
  Weight: 63.5 kg

DRUGS (8)
  1. CHANTIX [Suspect]
     Indication: SMOKING CESSATION THERAPY
     Dates: start: 20061005
  2. INSULIN [Concomitant]
     Indication: DIABETES MELLITUS
  3. ATENOLOL [Concomitant]
     Indication: BLOOD PRESSURE INCREASED
  4. NEURONTIN [Concomitant]
  5. VICODIN [Concomitant]
     Indication: BACK DISORDER
  6. ESTRADIOL [Concomitant]
  7. MEDROXYPROGESTERONE ACETATE [Concomitant]
  8. VALSARTAN [Concomitant]

REACTIONS (1)
  - ABDOMINAL DISCOMFORT [None]
